FAERS Safety Report 20406141 (Version 1)
Quarter: 2022Q1

REPORT INFORMATION
  Report Type: Spontaneous
  Country: US (occurrence: US)
  Receive Date: 20220131
  Receipt Date: 20220131
  Transmission Date: 20220423
  Serious: Yes (Other)
  Sender: FDA-Public Use
  Company Number: US-GLAXOSMITHKLINE-US2022GSK016451

PATIENT
  Sex: Male

DRUGS (4)
  1. ZANTAC [Suspect]
     Active Substance: RANITIDINE HYDROCHLORIDE
     Dosage: OCCASIONAL|UNKNOWN AT THIS TIME|OVER THE COUNTER
     Route: 065
     Dates: start: 199709, end: 201504
  2. ZANTAC [Suspect]
     Active Substance: RANITIDINE HYDROCHLORIDE
     Dosage: OCCASIONAL|UNKNOWN AT THIS TIME|OVER THE COUNTER
     Route: 065
     Dates: start: 199709, end: 201504
  3. RANITIDINE [Suspect]
     Active Substance: RANITIDINE
     Dosage: 25 MG
     Route: 065
     Dates: start: 199508, end: 201504
  4. RANITIDINE [Suspect]
     Active Substance: RANITIDINE
     Dosage: 25 MG
     Route: 065
     Dates: start: 199508, end: 201504

REACTIONS (1)
  - Pancreatic carcinoma [Unknown]
